FAERS Safety Report 5315028-7 (Version None)
Quarter: 2007Q2

REPORT INFORMATION
  Report Type: 
  Country: None (occurrence: None)
  Receive Date: 20070502
  Receipt Date: 20070502
  Transmission Date: 20071010
  Serious: Yes (Death, Hospitalization)
  Sender: FDA-Public Use
  Company Number: JP-BRISTOL-MYERS SQUIBB COMPANY-13742218

PATIENT
  Age: 49 Year
  Sex: Female

DRUGS (5)
  1. TAXOL [Suspect]
     Indication: INFLAMMATORY CARCINOMA OF THE BREAST
     Route: 041
     Dates: start: 20070317, end: 20070317
  2. DECADRON [Concomitant]
     Route: 041
     Dates: start: 20070317, end: 20070317
  3. GASTER [Concomitant]
     Route: 042
     Dates: start: 20070317, end: 20070317
  4. NASEA [Concomitant]
     Route: 041
     Dates: start: 20070317, end: 20070317
  5. RESTAMIN [Concomitant]
     Route: 041
     Dates: start: 20070317, end: 20070317

REACTIONS (3)
  - ASCITES [None]
  - MALIGNANT NEOPLASM PROGRESSION [None]
  - PLEURAL EFFUSION [None]
